FAERS Safety Report 26156081 (Version 1)
Quarter: 2025Q4

REPORT INFORMATION
  Report Type: Spontaneous
  Country: GB (occurrence: GB)
  Receive Date: 20251215
  Receipt Date: 20251215
  Transmission Date: 20260119
  Serious: Yes (Other)
  Sender: CELLTRION
  Company Number: None

PATIENT

DRUGS (4)
  1. HERZUMA [Suspect]
     Active Substance: TRASTUZUMAB-PKRB
     Indication: Product used for unknown indication
     Dosage: CYCLE1
     Dates: start: 20250218
  2. ACETAMINOPHEN [Suspect]
     Active Substance: ACETAMINOPHEN
     Indication: Product used for unknown indication
     Dosage: UNK
     Route: 042
  3. HYDROCORTISONE [Concomitant]
     Active Substance: HYDROCORTISONE
  4. CHLORPHENIRAMINE MALEATE [Concomitant]
     Active Substance: CHLORPHENIRAMINE MALEATE

REACTIONS (11)
  - Chromaturia [Unknown]
  - Jaundice [Unknown]
  - Blood pressure decreased [Unknown]
  - Infusion related reaction [Not Recovered/Not Resolved]
  - Respiratory rate increased [Unknown]
  - Chills [Unknown]
  - Oxygen consumption increased [Unknown]
  - Feeling cold [Unknown]
  - Pyrexia [Recovered/Resolved]
  - Blood albumin decreased [Unknown]
  - Blood bilirubin increased [Unknown]

NARRATIVE: CASE EVENT DATE: 20250218
